FAERS Safety Report 6508735-1 (Version None)
Quarter: 2009Q4

REPORT INFORMATION
  Report Type: 
  Country: None (occurrence: None)
  Receive Date: 20091221
  Receipt Date: 20090723
  Transmission Date: 20100525
  Serious: No
  Sender: FDA-Public Use
  Company Number: US-ASTRAZENECA-2009SE05835

PATIENT
  Age: 43 Year
  Sex: Male
  Weight: 91 kg

DRUGS (12)
  1. CRESTOR [Suspect]
     Indication: BLOOD CHOLESTEROL
     Route: 048
     Dates: start: 20060101
  2. LIPITOR [Suspect]
     Indication: BLOOD CHOLESTEROL
     Dosage: 10 MG OR 20 MG
     Route: 065
  3. LIPITOR [Suspect]
     Dosage: 80 MG FOR ABOUT 6-7 YEARS
     Route: 065
  4. LIPITOR [Suspect]
     Dosage: 80 MG EVERY OTHER NIGHT
     Route: 065
  5. ZOCOR [Concomitant]
  6. DRUG UNSPECIFIED [Concomitant]
     Indication: BLOOD CHOLESTEROL
  7. ASPIRIN [Concomitant]
  8. AVALIDE [Concomitant]
  9. MECLIZINE [Concomitant]
  10. XANAX [Concomitant]
  11. AMBIEN [Concomitant]
  12. ZETIA [Concomitant]

REACTIONS (1)
  - INFLUENZA [None]
